FAERS Safety Report 8033137-9 (Version None)
Quarter: 2012Q1

REPORT INFORMATION
  Report Type: 
  Country: None (occurrence: None)
  Receive Date: 20120110
  Receipt Date: 20120110
  Transmission Date: 20120608
  Serious: Yes (Life-Threatening, Hospitalization)
  Sender: FDA-Public Use
  Company Number: None

PATIENT
  Age: 53 Year
  Sex: Male
  Weight: 99.79 kg

DRUGS (2)
  1. PRADAXA [Suspect]
     Indication: ATRIAL FIBRILLATION
     Dates: start: 20110201, end: 20110309
  2. PRADAXA [Suspect]
     Indication: ATRIAL FLUTTER
     Dates: start: 20110201, end: 20110309

REACTIONS (1)
  - BLOOD TEST ABNORMAL [None]
